FAERS Safety Report 14789317 (Version 2)
Quarter: 2018Q2

REPORT INFORMATION
  Report Type: Report from Study
  Country: US (occurrence: US)
  Receive Date: 20180423
  Receipt Date: 20180508
  Transmission Date: 20180711
  Serious: Yes (Death)
  Sender: FDA-Public Use
  Company Number: PHEH2018US015013

PATIENT
  Age: 67 Year
  Sex: Male
  Weight: 87.27 kg

DRUGS (1)
  1. GILENYA [Suspect]
     Active Substance: FINGOLIMOD HYDROCHLORIDE
     Indication: MULTIPLE SCLEROSIS
     Dosage: 0.5 MG, QD
     Route: 048
     Dates: start: 201710, end: 201803

REACTIONS (4)
  - Oesophageal spasm [Fatal]
  - Metastatic gastric cancer [Fatal]
  - Back pain [Fatal]
  - Weight decreased [Fatal]

NARRATIVE: CASE EVENT DATE: 20180321
